FAERS Safety Report 9784617 (Version 2)
Quarter: 2013Q4

REPORT INFORMATION
  Report Type: Spontaneous
  Country: US (occurrence: US)
  Receive Date: 20131226
  Receipt Date: 20131226
  Transmission Date: 20140711
  Serious: No
  Sender: FDA-Public Use
  Company Number: US-009507513-2002-100782-NL

PATIENT
  Age: 76 Year
  Sex: Male

DRUGS (1)
  1. TICE BCG LIVE [Suspect]
     Indication: BLADDER CANCER
     Dosage: 6 WEEKLY CYCLES OF BCG
     Route: 043
     Dates: start: 1991

REACTIONS (1)
  - Osteomyelitis [Recovering/Resolving]
